FAERS Safety Report 14578786 (Version 2)
Quarter: 2018Q4

REPORT INFORMATION
  Report Type: Report from Study
  Country: CZ (occurrence: CZ)
  Receive Date: 20180227
  Receipt Date: 20181204
  Transmission Date: 20190204
  Serious: Yes (Other)
  Sender: FDA-Public Use
  Company Number: CZ-TEVA-2018-CZ-861180

PATIENT
  Age: 35 Year
  Sex: Male

DRUGS (1)
  1. COPAXONE [Suspect]
     Active Substance: GLATIRAMER ACETATE
     Indication: RELAPSING-REMITTING MULTIPLE SCLEROSIS
     Dosage: COPAXONE 40MG/ML
     Route: 058
     Dates: start: 20151101

REACTIONS (2)
  - Injection site injury [Recovered/Resolved with Sequelae]
  - Injection site bruising [Recovered/Resolved]

NARRATIVE: CASE EVENT DATE: 201801
